FAERS Safety Report 9159140 (Version 5)
Quarter: 2013Q1

REPORT INFORMATION
  Report Type: Spontaneous
  Country: US (occurrence: None)
  Receive Date: 20130212
  Receipt Date: 20130308
  Transmission Date: 20140127
  Serious: Yes (Hospitalization)
  Sender: FDA-Public Use
  Company Number: JPI-P-029273

PATIENT
  Age: 51 Year
  Sex: Male
  Weight: 154.22 kg

DRUGS (2)
  1. XYREM [Suspect]
     Indication: NARCOLEPSY
     Dosage: 4.5 GM (2.5 G, 2 IN 1 D), ORAL
     Route: 048
     Dates: start: 201301
  2. FLUOXETINE HYDROCHLORIDE [Concomitant]

REACTIONS (5)
  - Abnormal dreams [None]
  - Abdominal pain upper [None]
  - Irritable bowel syndrome [None]
  - Drug effect decreased [None]
  - Anxiety [None]
